FAERS Safety Report 14832900 (Version 1)
Quarter: 2018Q2

REPORT INFORMATION
  Report Type: Spontaneous
  Country: IN (occurrence: IN)
  Receive Date: 20180501
  Receipt Date: 20180501
  Transmission Date: 20180711
  Serious: Yes (Other)
  Sender: FDA-Public Use
  Company Number: PHHY2018IN069907

PATIENT
  Age: 52 Year
  Sex: Female

DRUGS (1)
  1. NATAMYCIN [Suspect]
     Active Substance: NATAMYCIN
     Indication: KERATITIS FUNGAL
     Dosage: UNK UNK, QH
     Route: 061

REACTIONS (2)
  - Product contamination microbial [Unknown]
  - Pseudomonas infection [Unknown]
